FAERS Safety Report 4747484-7 (Version None)
Quarter: 2005Q3

REPORT INFORMATION
  Report Type: 
  Country: None (occurrence: None)
  Receive Date: 20050815
  Receipt Date: 20050425
  Transmission Date: 20060218
  Serious: No
  Sender: FDA-Public Use
  Company Number: USA050496504

PATIENT
  Age: 80 Year
  Sex: Male

DRUGS (2)
  1. CIALIS [Suspect]
  2. DIGITEK (DIGOXIN -SANDOZ) [Concomitant]

REACTIONS (2)
  - DIARRHOEA [None]
  - HEADACHE [None]
